FAERS Safety Report 7862645-6 (Version None)
Quarter: 2011Q4

REPORT INFORMATION
  Report Type: 
  Country: None (occurrence: None)
  Receive Date: 20111027
  Receipt Date: 20101110
  Transmission Date: 20120403
  Serious: No
  Sender: FDA-Public Use
  Company Number: US-AMGEN-TCS436805

PATIENT
  Age: 63 Year
  Sex: Female
  Weight: 95 kg

DRUGS (1)
  1. ENBREL [Suspect]
     Indication: RHEUMATOID ARTHRITIS
     Dosage: 50 MG, QWK
     Route: 058
     Dates: start: 20091101

REACTIONS (5)
  - COUGH [None]
  - UPPER RESPIRATORY TRACT CONGESTION [None]
  - NASOPHARYNGITIS [None]
  - RHINORRHOEA [None]
  - SNEEZING [None]
